FAERS Safety Report 4277321-9 (Version None)
Quarter: 2004Q1

REPORT INFORMATION
  Report Type: 
  Country: None (occurrence: None)
  Receive Date: 20040120
  Receipt Date: 20031219
  Transmission Date: 20041129
  Serious: No
  Sender: FDA-Public Use
  Company Number: 2003AP04524

PATIENT
  Age: 67 Year
  Sex: Female

DRUGS (13)
  1. QUETIAPINE [Suspect]
     Indication: SCHIZOAFFECTIVE DISORDER
     Dosage: 50 MG BID
  2. QUETIAPINE [Suspect]
     Indication: SCHIZOAFFECTIVE DISORDER
     Dosage: 100 MG BID
  3. QUETIAPINE [Suspect]
     Indication: SCHIZOAFFECTIVE DISORDER
     Dosage: 50 MG BID
  4. QUETIAPINE [Suspect]
     Indication: SCHIZOAFFECTIVE DISORDER
     Dosage: 700 MG DAILY
  5. AMISULPRIDE [Suspect]
     Indication: SCHIZOAFFECTIVE DISORDER
     Dosage: 50 MG DAILY
  6. AMISULPRIDE [Suspect]
     Indication: SCHIZOAFFECTIVE DISORDER
     Dosage: 50 MG BID
  7. AMISULPRIDE [Suspect]
     Indication: SCHIZOAFFECTIVE DISORDER
     Dosage: 150 MG DAILY
  8. VALPROIC ACID [Concomitant]
  9. TEMAZEPAM [Concomitant]
  10. E-VITAMIN [Concomitant]
  11. LIPEX [Concomitant]
  12. COLOXYL [Concomitant]
  13. CLOZAPINE [Concomitant]

REACTIONS (7)
  - BLOOD PHOSPHORUS INCREASED [None]
  - DRUG INTERACTION [None]
  - ELECTROCARDIOGRAM QT CORRECTED INTERVAL PROLONGED [None]
  - SINUS TACHYCARDIA [None]
  - TARDIVE DYSKINESIA [None]
  - TREMOR [None]
  - VENTRICULAR EXTRASYSTOLES [None]
